FAERS Safety Report 19012111 (Version 2)
Quarter: 2021Q1

REPORT INFORMATION
  Report Type: Report from Study
  Country: DE (occurrence: DE)
  Receive Date: 20210315
  Receipt Date: 20210329
  Transmission Date: 20210420
  Serious: Yes (Hospitalization)
  Sender: FDA-Public Use
  Company Number: DE-TAKEDA-2021TUS013209

PATIENT
  Age: 49 Year
  Sex: Female

DRUGS (7)
  1. PARATHYROID HORMONE [Suspect]
     Active Substance: PARATHYROID HORMONE
     Indication: HYPOPARATHYROIDISM
     Dosage: 50 MICROGRAM, QD
     Route: 058
     Dates: start: 20210218, end: 20210318
  2. PARATHYROID HORMONE [Suspect]
     Active Substance: PARATHYROID HORMONE
     Indication: HYPOPARATHYROIDISM
     Dosage: 50 MICROGRAM, QD
     Route: 058
     Dates: start: 20210218, end: 20210318
  3. HYDROCORTISONE. [Concomitant]
     Active Substance: HYDROCORTISONE
     Indication: ADDISON^S DISEASE
     Dosage: 10 MILLIGRAM
     Route: 048
  4. PARATHYROID HORMONE [Suspect]
     Active Substance: PARATHYROID HORMONE
     Indication: HYPOPARATHYROIDISM
     Dosage: 50 MICROGRAM, QD
     Route: 058
     Dates: start: 20210218, end: 20210318
  5. PLENADREN [Suspect]
     Active Substance: HYDROCORTISONE
     Indication: ADDISON^S DISEASE
     Dosage: 25 MILLIGRAM, QD
     Route: 048
     Dates: end: 20210318
  6. CALCIUM VERLA [Concomitant]
     Active Substance: CALCIUM
     Indication: HYPOPARATHYROIDISM
     Dosage: 600 MILLIGRAM, BID
     Route: 048
  7. ASTONIN H [Concomitant]
     Indication: ADDISON^S DISEASE
     Dosage: 0.1 MILLIGRAM, QD
     Route: 048

REACTIONS (4)
  - Blood calcium decreased [Recovering/Resolving]
  - Muscle spasms [Recovered/Resolved]
  - Hypotension [Recovered/Resolved]
  - COVID-19 [Recovering/Resolving]
